FAERS Safety Report 5327996-8 (Version None)
Quarter: 2007Q2

REPORT INFORMATION
  Report Type: 
  Country: None (occurrence: None)
  Receive Date: 20070517
  Receipt Date: 20070502
  Transmission Date: 20071010
  Serious: Yes (Hospitalization)
  Sender: FDA-Public Use
  Company Number: US-SHR-US-2007-006204

PATIENT
  Age: 22 Year
  Sex: Female

DRUGS (1)
  1. BETASERON [Suspect]
     Dosage: 6 MIU, EVERY 2D
     Route: 058
     Dates: start: 20070118

REACTIONS (2)
  - LOSS OF CONSCIOUSNESS [None]
  - MULTIPLE SCLEROSIS [None]
